FAERS Safety Report 8910441 (Version 1)
Quarter: 2012Q4

REPORT INFORMATION
  Report Type: 
  Country: IT (occurrence: IT)
  Receive Date: 20121114
  Receipt Date: 20121114
  Transmission Date: 20130627
  Serious: Yes (Death)
  Sender: FDA-Public Use
  Company Number: IT-CELGENEUS-083-21880-12111045

PATIENT

DRUGS (1)
  1. REVLIMID [Suspect]
     Indication: DIFFUSE LARGE B-CELL LYMPHOMA
     Route: 048

REACTIONS (1)
  - Death [Fatal]
